FAERS Safety Report 4270404-9 (Version None)
Quarter: 2004Q1

REPORT INFORMATION
  Report Type: 
  Country: None (occurrence: None)
  Receive Date: 20040113
  Receipt Date: 20040113
  Transmission Date: 20041129
  Serious: Yes (Hospitalization)
  Sender: FDA-Public Use
  Company Number: None

PATIENT
  Age: 79 Year

DRUGS (4)
  1. GATIFLOXACIN [Suspect]
     Indication: URINARY TRACT INFECTION
     Dosage: 400 MG QD
     Dates: start: 20030613, end: 20030616
  2. GLIPIZIDE [Concomitant]
  3. METFORMIN HCL [Concomitant]
  4. RABAPRAZOLE [Concomitant]

REACTIONS (1)
  - BLOOD GLUCOSE INCREASED [None]
